FAERS Safety Report 21059713 (Version 1)
Quarter: 2022Q3

REPORT INFORMATION
  Report Type: Spontaneous
  Country: US (occurrence: US)
  Receive Date: 20220708
  Receipt Date: 20220708
  Transmission Date: 20221026
  Serious: Yes (Other)
  Sender: FDA-Public Use
  Company Number: US-BAYER-2022A092822

PATIENT
  Age: 64 Year
  Sex: Male

DRUGS (2)
  1. CALCIUM CARBONATE [Suspect]
     Active Substance: CALCIUM CARBONATE
     Indication: Hyperparathyroidism secondary
  2. VITAMIN D NOS [Suspect]
     Active Substance: VITAMIN D NOS

REACTIONS (18)
  - Penile gangrene [None]
  - Hyperoxaluria [None]
  - Vascular calcification [None]
  - Penile ulceration [None]
  - Skin ulcer [None]
  - Nephrolithiasis [None]
  - Hydronephrosis [None]
  - Cachexia [None]
  - Acute kidney injury [None]
  - Penile necrosis [None]
  - Urethral obstruction [None]
  - Aortic arteriosclerosis [None]
  - Hypercalcaemia [None]
  - Terminal ileitis [None]
  - Off label use [None]
  - Unintentional use for unapproved indication [None]
  - Contraindicated product administered [None]
  - Drug interaction [None]
